FAERS Safety Report 5526100-0 (Version None)
Quarter: 2007Q4

REPORT INFORMATION
  Report Type: 
  Country: None (occurrence: None)
  Receive Date: 20071120
  Receipt Date: 20071113
  Transmission Date: 20080405
  Serious: Yes (Other)
  Sender: FDA-Public Use
  Company Number: THQ2007A00963

PATIENT
  Age: 76 Year
  Sex: Male

DRUGS (3)
  1. ACTOS [Suspect]
     Indication: TYPE 2 DIABETES MELLITUS
     Dosage: 30 MG (30 MG, 1 IN 1 D) PER ORAL
     Route: 048
     Dates: start: 20070101, end: 20070930
  2. ANTIHYPERTENSIVES [Concomitant]
  3. METFORMIN HCL [Concomitant]

REACTIONS (1)
  - ANAEMIA MEGALOBLASTIC [None]
